FAERS Safety Report 21101182 (Version 1)
Quarter: 2022Q3

REPORT INFORMATION
  Report Type: Spontaneous
  Country: US (occurrence: US)
  Receive Date: 20220719
  Receipt Date: 20220719
  Transmission Date: 20221027
  Serious: Yes (Hospitalization)
  Sender: FDA-Public Use
  Company Number: US-MALLINCKRODT-T202203666

PATIENT
  Sex: Female

DRUGS (4)
  1. H.P. ACTHAR [Suspect]
     Active Substance: CORTICOTROPIN
     Indication: Infantile spasms
     Dosage: 027 MILLILITER, BID DAYS 1-14
     Route: 030
     Dates: start: 20220609, end: 20220622
  2. H.P. ACTHAR [Suspect]
     Active Substance: CORTICOTROPIN
     Dosage: 011 MILLILITER, QD DAYS 15-17
     Route: 030
     Dates: start: 20220623, end: 20220625
  3. H.P. ACTHAR [Suspect]
     Active Substance: CORTICOTROPIN
     Dosage: 005 MILLILITER, QD DAYS 18-20
     Route: 030
     Dates: start: 20220626, end: 20220628
  4. H.P. ACTHAR [Suspect]
     Active Substance: CORTICOTROPIN
     Dosage: 004 MILLILITER, QD DAYS 21-23
     Route: 030
     Dates: start: 20220629

REACTIONS (2)
  - Hospitalisation [Unknown]
  - Pain [Not Recovered/Not Resolved]

NARRATIVE: CASE EVENT DATE: 20220101
